FAERS Safety Report 9294381 (Version 2)
Quarter: 2013Q3

REPORT INFORMATION
  Report Type: Report from Study
  Country: AU (occurrence: AU)
  Receive Date: 20130516
  Receipt Date: 20130725
  Transmission Date: 20140515
  Serious: Yes (Hospitalization, Other)
  Sender: FDA-Public Use
  Company Number: AU-CELGENEUS-008-C5013-13023708

PATIENT
  Age: 78 Year
  Sex: Male
  Weight: 96.6 kg

DRUGS (12)
  1. CC-5013 [Suspect]
     Indication: CHRONIC LYMPHOCYTIC LEUKAEMIA
     Dosage: 5 MILLIGRAM
     Route: 048
     Dates: start: 20130220, end: 20130301
  2. CC-5013 [Suspect]
     Route: 048
     Dates: start: 20130405, end: 20130410
  3. ALLOPURINOL [Concomitant]
     Indication: PROPHYLAXIS
     Dosage: 300 MILLIGRAM
     Route: 048
     Dates: start: 20130217, end: 20130225
  4. FRUSEMIDE [Concomitant]
     Indication: PRODUCT USED FOR UNKNOWN INDICATION
     Route: 065
  5. ATACAND [Concomitant]
     Indication: PRODUCT USED FOR UNKNOWN INDICATION
     Route: 065
  6. ENOXAPARIN [Concomitant]
     Indication: PROPHYLAXIS
     Dosage: 40 MILLIGRAM
     Route: 058
     Dates: start: 20130227
  7. DERMEZE [Concomitant]
     Indication: RASH
     Route: 061
     Dates: start: 20130301
  8. DERMEZE [Concomitant]
     Route: 061
     Dates: end: 20130414
  9. BETAMETHASONE [Concomitant]
     Indication: RASH
     Dosage: 0.02%
     Route: 061
     Dates: start: 20130305
  10. BETAMETHASONE [Concomitant]
     Dosage: 0.02%
     Route: 061
     Dates: end: 20130414
  11. CETAPHIL [Concomitant]
     Indication: RASH
     Route: 061
     Dates: start: 20130302
  12. CETAPHIL [Concomitant]
     Route: 061
     Dates: end: 20130414

REACTIONS (2)
  - Hyponatraemia [Recovered/Resolved]
  - Exfoliative rash [Recovered/Resolved]
